FAERS Safety Report 6422869-1 (Version None)
Quarter: 2009Q4

REPORT INFORMATION
  Report Type: 
  Country: None (occurrence: None)
  Receive Date: 20091102
  Receipt Date: 20091021
  Transmission Date: 20100525
  Serious: Yes (Hospitalization)
  Sender: FDA-Public Use
  Company Number: GB-ROCHE-661734

PATIENT
  Sex: Male
  Weight: 67.9 kg

DRUGS (5)
  1. CAPECITABINE [Suspect]
     Indication: COLON CANCER
     Dosage: TOTAL DIALY DOSE: 2000 MG/M^2. DOSE TAKEN AS PER PROTOCOL.
     Route: 048
     Dates: start: 20090424
  2. CAPECITABINE [Suspect]
     Dosage: 25 % DOSE REDUCTION (FOR CYCLE 3), THERAPY INTERRUPTED.
     Route: 048
  3. ATENOLOL [Suspect]
     Indication: HYPERTENSION
     Dosage: DOSAGE FORM NOT REPORTED, START DATE REPORTED 'N/K'.
     Route: 048
  4. AMLODIPINE [Suspect]
     Indication: HYPERTENSION
     Dosage: NO DOSAGE FORM IS REPORTED.  START DATE IS REPORTED AS 'N/K'.
     Route: 048
  5. DOXAZOSIN MESYLATE [Suspect]
     Indication: HYPERTENSION
     Dosage: DOSE FORM NOT REPORTED,THE DRUG NAME IS REPORTED AS 'DOXAZOCIN MR'.  THE START DATE REPORTED AS N/K.
     Route: 048

REACTIONS (1)
  - DEHYDRATION [None]
